FAERS Safety Report 7821673-7 (Version None)
Quarter: 2011Q4

REPORT INFORMATION
  Report Type: 
  Country: None (occurrence: None)
  Receive Date: 20111018
  Receipt Date: 20111011
  Transmission Date: 20120403
  Serious: Yes (Hospitalization)
  Sender: FDA-Public Use
  Company Number: JP-TYCO HEALTHCARE/MALLINCKRODT-T201101313

PATIENT
  Sex: Female
  Weight: 53.2 kg

DRUGS (24)
  1. METHADONE HCL [Suspect]
     Dosage: 20 MG, TID
     Dates: start: 20110511, end: 20110601
  2. DEXAMETHASONE SODIUM PHOSPHATE [Concomitant]
     Dosage: 6.6 MG ONCE WEEKLY X 2 WEEKS, 1 WEEK ABSENCE
     Dates: start: 20110614
  3. OXINORM                            /00547301/ [Concomitant]
     Indication: PAIN
     Dosage: 5 MG, PRN
  4. METHADONE HCL [Suspect]
     Dosage: 15 MG, TID
     Dates: start: 20110330, end: 20110510
  5. SODIUM CHLORIDE [Concomitant]
     Dosage: 100 ML ONCE/6 WEEKS
  6. KAIBEEL C [Concomitant]
     Indication: CONSTIPATION
     Dosage: 3 TAB/TIME AS NEEDED
     Dates: start: 20110204
  7. ZOLPIDEM [Concomitant]
     Indication: INSOMNIA
     Dosage: 10 MG, PRN
  8. FUCIDINLEO [Concomitant]
     Dosage: ADEQUATE DOSE TWICE A DAY
     Dates: start: 20110627, end: 20110706
  9. HEPARIN NA LOCK [Concomitant]
     Dosage: 10 UNITS/TIME
     Dates: start: 20110614
  10. SODIUM CHLORIDE [Concomitant]
     Dosage: 50 ML ONCE WEEKLY X 2 WEEKS, 1 WEEK ABSENCE
     Dates: start: 20110614
  11. KETOPROFEN [Concomitant]
     Indication: NEOPLASM MALIGNANT
     Dosage: 1 OE 2 SHEETS/TIME AS NEEDED
  12. ZOMETA [Concomitant]
     Dosage: 4 MG ONCE/6 WEEKS
     Route: 042
  13. MAGNESIUM OXIDE [Concomitant]
     Indication: CONSTIPATION
     Dosage: 1 G, PRN
     Dates: start: 20110204
  14. HIRUDOID                           /00723701/ [Concomitant]
     Dosage: ADEQUATE DOSE
  15. FLOMOX [Concomitant]
     Dosage: 100 MG, TID
     Dates: start: 20110627, end: 20110628
  16. METHADONE HCL [Suspect]
     Indication: CANCER PAIN
     Dosage: 25 MG, TID
     Dates: start: 20110602
  17. METHADONE HCL [Suspect]
     Dosage: 10 MG TID
     Route: 048
     Dates: start: 20110216, end: 20110329
  18. VINORELBINE TARTRATE [Suspect]
     Indication: NEOPLASM MALIGNANT
     Dosage: 38 MG ONCE WEEKLY X 2 WEEKS, 1 WEEK ABSENCE
     Route: 042
     Dates: start: 20110614
  19. LOCOID                             /00028605/ [Concomitant]
     Dosage: ADEQUATE DOSE
  20. HYALEIN [Concomitant]
     Dosage: ADEQUATE DOSE
  21. SODIUM CHLORIDE [Concomitant]
     Dosage: 50 ML ONCE WEEKLY X 2 WEEKS, 1 WEEK ABSENCE
     Dates: start: 20110614
  22. SODIUM CHLORIDE [Concomitant]
     Dosage: 270 ML ONCE WEEKLY X 2 WEEKS, 1 WEEK ABSENCE
     Dates: start: 20110614
  23. RINDERON-VG [Concomitant]
     Dosage: ADEQUATE DOSE
  24. CEFAZOLIN SODIUM [Concomitant]
     Dosage: 1 TAB TID
     Dates: start: 20110627, end: 20110702

REACTIONS (7)
  - MALNUTRITION [None]
  - FEBRILE NEUTROPENIA [None]
  - LYMPH NODE PAIN [None]
  - OROPHARYNGEAL PAIN [None]
  - LACERATION [None]
  - WOUND COMPLICATION [None]
  - ARTHRALGIA [None]
